FAERS Safety Report 10276216 (Version 1)
Quarter: 2014Q3

REPORT INFORMATION
  Report Type: Spontaneous
  Country: FR (occurrence: FR)
  Receive Date: 20140703
  Receipt Date: 20140703
  Transmission Date: 20150326
  Serious: Yes (Life-Threatening, Hospitalization)
  Sender: FDA-Public Use
  Company Number: FR-PFIZER INC-2014183671

PATIENT
  Age: 80 Year
  Sex: Male

DRUGS (8)
  1. CORDARONE [Suspect]
     Active Substance: AMIODARONE HYDROCHLORIDE
     Indication: ATRIAL FIBRILLATION
     Dosage: 200 MG, DAILY
     Route: 048
     Dates: end: 20140531
  2. TRAMADOL [Concomitant]
     Active Substance: TRAMADOL
  3. INEXIUM [Concomitant]
     Active Substance: ESOMEPRAZOLE
     Dosage: 20 MG, UNK
  4. SEROPLEX [Suspect]
     Active Substance: ESCITALOPRAM OXALATE
     Indication: DEPRESSION
     Dosage: 10 MG, DAILY
     Route: 048
     Dates: start: 20140527, end: 20140531
  5. STILNOX [Concomitant]
     Active Substance: ZOLPIDEM TARTRATE
  6. VASTEN [Concomitant]
     Active Substance: PRAVASTATIN SODIUM
  7. LEVOTHYROX [Concomitant]
     Active Substance: LEVOTHYROXINE
  8. ISOCARD [Concomitant]

REACTIONS (7)
  - Brain natriuretic peptide increased [Unknown]
  - Malaise [Unknown]
  - Dyspnoea [Unknown]
  - Electrocardiogram QT prolonged [Unknown]
  - Heart rate decreased [Unknown]
  - Syncope [Unknown]
  - Torsade de pointes [Recovered/Resolved]

NARRATIVE: CASE EVENT DATE: 20140530
